FAERS Safety Report 13050189 (Version 1)
Quarter: 2016Q4

REPORT INFORMATION
  Report Type: Spontaneous
  Country: FR (occurrence: FR)
  Receive Date: 20161221
  Receipt Date: 20161221
  Transmission Date: 20170207
  Serious: Yes (Death, Hospitalization)
  Sender: FDA-Public Use
  Company Number: FR-PFIZER INC-2016586158

PATIENT
  Age: 75 Year
  Sex: Male

DRUGS (14)
  1. KEPPRA [Interacting]
     Active Substance: LEVETIRACETAM
     Dosage: 750 MG, UNK
     Route: 040
     Dates: start: 20161024, end: 20161025
  2. HYPNOVEL /00634101/ [Interacting]
     Active Substance: MIDAZOLAM\MIDAZOLAM HYDROCHLORIDE
     Dosage: INCREASING DOSAGE UP TO 60 MG/H
     Route: 041
     Dates: start: 20161024, end: 20161025
  3. TEGRETOL [Interacting]
     Active Substance: CARBAMAZEPINE
     Dosage: UNK
     Route: 048
     Dates: start: 20161013, end: 201610
  4. KEPPRA [Interacting]
     Active Substance: LEVETIRACETAM
     Dosage: 1000 MG, UNK
     Route: 040
     Dates: start: 201610, end: 20161016
  5. PRODILANTIN [Suspect]
     Active Substance: FOSPHENYTOIN SODIUM
     Dosage: UNK
     Route: 042
     Dates: start: 20161013, end: 20161016
  6. KEPPRA [Interacting]
     Active Substance: LEVETIRACETAM
     Dosage: UNK
     Route: 040
     Dates: start: 20161013, end: 201610
  7. KEPPRA [Interacting]
     Active Substance: LEVETIRACETAM
     Dosage: 1500 MG, UNK
     Route: 040
     Dates: start: 20161017, end: 20161018
  8. URBANYL [Interacting]
     Active Substance: CLOBAZAM
     Dosage: 10 MG, 2X/DAY
     Route: 048
     Dates: start: 20161017, end: 20161018
  9. TEGRETOL [Interacting]
     Active Substance: CARBAMAZEPINE
     Dosage: 200 MG, DAILY
     Route: 048
     Dates: start: 201610, end: 20161018
  10. RIVOTRIL [Interacting]
     Active Substance: CLONAZEPAM
     Dosage: 0.1 MG, PER HOUR
     Route: 041
     Dates: start: 201610, end: 20161018
  11. HYPNOVEL /00634101/ [Interacting]
     Active Substance: MIDAZOLAM\MIDAZOLAM HYDROCHLORIDE
     Dosage: 3 MG/HOUR THEN 5 MG/HOUR
     Route: 041
     Dates: start: 20161017, end: 20161017
  12. HYPNOVEL /00634101/ [Interacting]
     Active Substance: MIDAZOLAM\MIDAZOLAM HYDROCHLORIDE
     Dosage: 5 MG/H THEN 7 MG/H THEN 8 MG/H
     Route: 041
     Dates: start: 20161018, end: 20161018
  13. RIVOTRIL [Interacting]
     Active Substance: CLONAZEPAM
     Dosage: UNK
     Route: 041
     Dates: start: 20161013, end: 201610
  14. HYPNOVEL /00634101/ [Interacting]
     Active Substance: MIDAZOLAM\MIDAZOLAM HYDROCHLORIDE
     Dosage: GRADUALLY INCREASING DOSAGE, UP TO 40 MG/H
     Route: 041
     Dates: start: 20161019, end: 20161023

REACTIONS (3)
  - Status epilepticus [Fatal]
  - Drug ineffective [Not Recovered/Not Resolved]
  - Drug interaction [Not Recovered/Not Resolved]

NARRATIVE: CASE EVENT DATE: 20161013
